FAERS Safety Report 7035137-4 (Version None)
Quarter: 2010Q4

REPORT INFORMATION
  Report Type: 
  Country: None (occurrence: None)
  Receive Date: 20101007
  Receipt Date: 20101007
  Transmission Date: 20110411
  Serious: Yes (Life-Threatening)
  Sender: FDA-Public Use
  Company Number: None

PATIENT
  Age: 37 Year
  Sex: Male

DRUGS (1)
  1. LATRODUCTUS MACTANS 2.5 ML MIXED IN 50 ML NS MERCK + CO. INC. [Suspect]
     Indication: ARTHROPOD BITE
     Dosage: 2.5 ML MIXED IN 50 ML NS ONE TIME INJECTION IV
     Route: 042
     Dates: start: 20100829, end: 20100829

REACTIONS (14)
  - ACIDOSIS [None]
  - AGITATION [None]
  - ANAPHYLACTIC REACTION [None]
  - ANXIETY [None]
  - BLOOD PRESSURE IMMEASURABLE [None]
  - BRONCHOSPASM [None]
  - INFUSION RELATED REACTION [None]
  - LOSS OF CONSCIOUSNESS [None]
  - PAIN [None]
  - PULSE ABNORMAL [None]
  - RESPIRATION ABNORMAL [None]
  - RESUSCITATION [None]
  - TONIC CLONIC MOVEMENTS [None]
  - WHEEZING [None]
